FAERS Safety Report 5994894-6 (Version None)
Quarter: 2008Q4

REPORT INFORMATION
  Report Type: 
  Country: None (occurrence: None)
  Receive Date: 20081210
  Receipt Date: 20081204
  Transmission Date: 20090506
  Serious: Yes (Death, Life-Threatening)
  Sender: FDA-Public Use
  Company Number: 2008JP005352

PATIENT
  Age: 6 Month
  Sex: Female
  Weight: 4.5 kg

DRUGS (25)
  1. PROGRAF [Suspect]
     Indication: CORD BLOOD TRANSPLANT THERAPY
     Dosage: (SEE IMAGE); IV DRIP
     Route: 041
     Dates: start: 20080202, end: 20080206
  2. PROGRAF [Suspect]
     Indication: CORD BLOOD TRANSPLANT THERAPY
     Dosage: (SEE IMAGE); IV DRIP
     Route: 041
     Dates: start: 20080207, end: 20080208
  3. PROGRAF [Suspect]
     Indication: CORD BLOOD TRANSPLANT THERAPY
     Dosage: (SEE IMAGE); IV DRIP
     Route: 041
     Dates: start: 20080210, end: 20080210
  4. PROGRAF [Suspect]
     Indication: CORD BLOOD TRANSPLANT THERAPY
     Dosage: (SEE IMAGE); IV DRIP
     Route: 041
     Dates: start: 20080211, end: 20080212
  5. PROGRAF [Suspect]
     Indication: CORD BLOOD TRANSPLANT THERAPY
     Dosage: (SEE IMAGE); IV DRIP
     Route: 041
     Dates: start: 20080213, end: 20080221
  6. PROGRAF [Suspect]
     Indication: CORD BLOOD TRANSPLANT THERAPY
     Dosage: (SEE IMAGE); IV DRIP
     Route: 041
     Dates: start: 20080222, end: 20080224
  7. PROGRAF [Suspect]
     Indication: CORD BLOOD TRANSPLANT THERAPY
     Dosage: (SEE IMAGE); IV DRIP
     Route: 041
     Dates: start: 20080225, end: 20080304
  8. PROGRAF [Suspect]
     Indication: CORD BLOOD TRANSPLANT THERAPY
     Dosage: (SEE IMAGE); IV DRIP
     Route: 041
     Dates: start: 20080305, end: 20080305
  9. METHOTREXATE [Suspect]
     Indication: CORD BLOOD TRANSPLANT THERAPY
     Dosage: 2.6 MG, UID/QD; IV NOS; 1.8 MG, UID/QD; IV NOS
     Route: 042
     Dates: start: 20080209, end: 20080209
  10. METHOTREXATE [Suspect]
     Indication: CORD BLOOD TRANSPLANT THERAPY
     Dosage: 2.6 MG, UID/QD; IV NOS; 1.8 MG, UID/QD; IV NOS
     Route: 042
     Dates: start: 20080211, end: 20080211
  11. METHOTREXATE [Suspect]
     Indication: CORD BLOOD TRANSPLANT THERAPY
     Dosage: 2.6 MG, UID/QD; IV NOS; 1.8 MG, UID/QD; IV NOS
     Route: 042
     Dates: start: 20080214, end: 20080214
  12. SOLUCORTEF(HYDROCORTISCORTISONE SODIUM SUCCINATE) INJECTION [Suspect]
     Indication: VOMITING
     Dosage: 1.25 MG, BID, IV NOS
     Route: 042
     Dates: start: 20080131, end: 20080220
  13. PREDNISOLONE [Suspect]
     Indication: RESPIRATORY SYNCYTIAL VIRUS INFECTION
     Dosage: 5 MG, BID, IV DRIP
     Route: 041
     Dates: start: 20080221, end: 20080308
  14. FLUDARABINE PHOSPHATE [Suspect]
     Indication: OSTEOPETROSIS
     Dosage: 30 MG/M2, UNKNOWN/D, IV DRIP
     Route: 041
  15. ALKERAN [Suspect]
     Indication: OSTEOPETROSIS
     Dosage: 16 MG, UID/QD, IV NOS
     Route: 042
     Dates: start: 20080205, end: 20080206
  16. L-PAM (MELPHAN) [Concomitant]
  17. PIPERACILLIN [Concomitant]
  18. FUNGUARD (MICAFUNGIN) [Concomitant]
  19. NEUPOGEN [Concomitant]
  20. ZOVIRAX [Concomitant]
  21. CARBENIN (BETAMIPRON, PANIPENEM) [Concomitant]
  22. PIPERACILLIN SODIUM AND TAZOBACTAM SODIUM [Concomitant]
  23. AMIKACIN [Concomitant]
  24. SOL MEDROL (METHYLPREDNISOLONE, SUCCINATE SODIUM) [Concomitant]
  25. POLYGLOBIN (IMMUNOGLOBULIN) [Concomitant]

REACTIONS (6)
  - BLOOD PRESSURE DECREASED [None]
  - CARDIAC ARREST [None]
  - CONDITION AGGRAVATED [None]
  - ENGRAFTMENT SYNDROME [None]
  - RESPIRATORY FAILURE [None]
  - RESPIRATORY SYNCYTIAL VIRUS INFECTION [None]
